FAERS Safety Report 5572226-5 (Version None)
Quarter: 2007Q4

REPORT INFORMATION
  Report Type: 
  Country: None (occurrence: None)
  Receive Date: 20071221
  Receipt Date: 20071214
  Transmission Date: 20080405
  Serious: Yes (Other)
  Sender: FDA-Public Use
  Company Number: SE-PFIZER INC-2007105340

PATIENT
  Age: 67 Year
  Sex: Male

DRUGS (11)
  1. TRANEXAMIC ACID (IV) [Suspect]
     Dosage: FREQ:TWO INJECTIONS
     Route: 042
     Dates: start: 20070722, end: 20070723
  2. OMEPRAZOLE [Concomitant]
  3. NEXIUM [Concomitant]
  4. ALVEDON [Concomitant]
  5. MORPHINE [Concomitant]
  6. SODIUM CHLORIDE [Concomitant]
  7. KALIUM RETARD [Concomitant]
  8. PRONAXEN [Concomitant]
  9. LACTULOSE [Concomitant]
  10. TRADOLAN [Concomitant]
  11. NOVORAPID [Concomitant]

REACTIONS (1)
  - CONVULSION [None]
